FAERS Safety Report 6082393-5 (Version None)
Quarter: 2009Q1

REPORT INFORMATION
  Report Type: 
  Country: None (occurrence: None)
  Receive Date: 20090218
  Receipt Date: 20090210
  Transmission Date: 20090719
  Serious: Yes (Other)
  Sender: FDA-Public Use
  Company Number: GB-GENENTECH-268526

PATIENT
  Age: 49 Year
  Sex: Male

DRUGS (3)
  1. MABTHERA [Suspect]
     Indication: VOGT-KOYANAGI-HARADA SYNDROME
  2. PREDNISOLONE [Suspect]
     Indication: VOGT-KOYANAGI-HARADA SYNDROME
     Route: 065
  3. TACROLIMUS [Suspect]
     Indication: VOGT-KOYANAGI-HARADA SYNDROME
     Route: 065

REACTIONS (1)
  - PHAEHYPHOMYCOSIS [None]
